FAERS Safety Report 6235427-9 (Version None)
Quarter: 2009Q2

REPORT INFORMATION
  Report Type: 
  Country: None (occurrence: None)
  Receive Date: 20090618
  Receipt Date: 20090611
  Transmission Date: 20091009
  Serious: Yes (Hospitalization, Disabling)
  Sender: FDA-Public Use
  Company Number: JP-MERCK-0906USA00770

PATIENT
  Age: 60 Year
  Sex: Male
  Weight: 66 kg

DRUGS (6)
  1. PRIMAXIN [Suspect]
     Indication: SPONDYLITIS
     Route: 042
     Dates: start: 20090529, end: 20090602
  2. ROCEPHIN [Concomitant]
     Indication: SPONDYLITIS
     Route: 042
     Dates: start: 20090422, end: 20090529
  3. LOXOPROFEN [Concomitant]
     Route: 048
  4. SUCRALFATE [Concomitant]
     Route: 048
  5. FAMOTIDINE [Concomitant]
     Route: 048
  6. AMLODIPINE BESYLATE [Concomitant]
     Route: 048

REACTIONS (4)
  - ALANINE AMINOTRANSFERASE INCREASED [None]
  - ASPARTATE AMINOTRANSFERASE INCREASED [None]
  - BLOOD ALKALINE PHOSPHATASE INCREASED [None]
  - PYREXIA [None]
